FAERS Safety Report 7927871-6 (Version None)
Quarter: 2011Q4

REPORT INFORMATION
  Report Type: 
  Country: None (occurrence: None)
  Receive Date: 20111117
  Receipt Date: 20111117
  Transmission Date: 20120403
  Serious: No
  Sender: FDA-Public Use
  Company Number: None

PATIENT
  Age: 44 Year
  Sex: Female
  Weight: 51 kg

DRUGS (2)
  1. LEVOFLOXACIN [Suspect]
     Indication: SINUSITIS
     Dosage: 500 MG TABLET 1 ORAL
     Route: 048
     Dates: start: 20110904, end: 20110913
  2. LEVOFLOXACIN [Suspect]
     Dosage: 750 MG TABLET 1 ORAL
     Route: 048
     Dates: start: 20110914, end: 20110917

REACTIONS (2)
  - TENDONITIS [None]
  - TENOSYNOVITIS [None]
